FAERS Safety Report 19839729 (Version 1)
Quarter: 2021Q3

REPORT INFORMATION
  Report Type: Spontaneous
  Country: US (occurrence: US)
  Receive Date: 20210916
  Receipt Date: 20210916
  Transmission Date: 20211014
  Serious: No
  Sender: FDA-Public Use
  Company Number: US-BSC-2021000035

PATIENT
  Age: 56 Year
  Sex: Female

DRUGS (2)
  1. VARITHENA [Suspect]
     Active Substance: POLIDOCANOL
     Dosage: UNIQUE CANISTER NUMBER: 202?00210932
     Dates: start: 20210310, end: 20210310
  2. VARITHENA [Suspect]
     Active Substance: POLIDOCANOL
     Dosage: UNIQUE CANISTER NUMBER: 202?00210932
     Dates: start: 20210317, end: 20210317

REACTIONS (3)
  - Wrong technique in product usage process [Unknown]
  - Wrong technique in product usage process [Unknown]
  - No adverse event [Unknown]

NARRATIVE: CASE EVENT DATE: 20210310
